FAERS Safety Report 5079677-6 (Version None)
Quarter: 2006Q3

REPORT INFORMATION
  Report Type: 
  Country: None (occurrence: None)
  Receive Date: 20060808
  Receipt Date: 20060719
  Transmission Date: 20061208
  Serious: Yes (Hospitalization, Other)
  Sender: FDA-Public Use
  Company Number: US200607003335

PATIENT
  Age: 72 Year
  Sex: Female

DRUGS (6)
  1. FORTEO [Suspect]
     Indication: OSTEOPOROSIS
     Dates: start: 20060101, end: 20060101
  2. FORTEO [Suspect]
     Indication: OSTEOPOROSIS
     Dates: start: 20060711
  3. ZOCOR [Concomitant]
  4. DIURETICS [Concomitant]
  5. POTASSIUM (POTASSIUM) [Concomitant]
  6. FORTEO [Concomitant]

REACTIONS (3)
  - FALL [None]
  - HIP FRACTURE [None]
  - THERAPY CESSATION [None]
